FAERS Safety Report 16026790 (Version 2)
Quarter: 2019Q2

REPORT INFORMATION
  Report Type: Spontaneous
  Country: CZ (occurrence: CZ)
  Receive Date: 20190303
  Receipt Date: 20190417
  Transmission Date: 20190711
  Serious: Yes (Life-Threatening, Hospitalization, Disabling, Other)
  Sender: FDA-Public Use
  Company Number: PHHY2017CZ191344

PATIENT
  Age: 51 Year
  Sex: Female

DRUGS (16)
  1. BUDESONIDE. [Concomitant]
     Active Substance: BUDESONIDE
     Indication: ASTHMA
     Dosage: 1 DF,160/4.5 MG
     Route: 055
  2. METOCLOPRAMIDE. [Suspect]
     Active Substance: METOCLOPRAMIDE
     Indication: PRODUCT USED FOR UNKNOWN INDICATION
     Dosage: UNK
     Route: 065
  3. BROMAZEPAM [Concomitant]
     Active Substance: BROMAZEPAM
     Indication: PSYCHIATRIC SYMPTOM
  4. VORICONAZOLE. [Concomitant]
     Active Substance: VORICONAZOLE
     Indication: PNEUMONIA
     Dosage: UNK
     Route: 065
  5. ACETAMINOPHEN. [Concomitant]
     Active Substance: ACETAMINOPHEN
     Indication: PYREXIA
     Dosage: 4 G, QD
     Route: 065
  6. CHLORPROTHIXENE [Concomitant]
     Active Substance: CHLORPROTHIXENE
     Indication: PSYCHIATRIC SYMPTOM
     Dosage: 50 MG, QD
     Route: 048
  7. PAROXETINE. [Suspect]
     Active Substance: PAROXETINE
     Indication: MENTAL DISORDER
     Dosage: 60 MG, QD
     Route: 048
  8. MELOXICAM. [Suspect]
     Active Substance: MELOXICAM
     Indication: PAIN
     Dosage: UNK
     Route: 048
  9. TRAMADOL+PARACETAMOL [Interacting]
     Active Substance: ACETAMINOPHEN\TRAMADOL
     Indication: PRODUCT USED FOR UNKNOWN INDICATION
     Dosage: UNK
     Route: 065
  10. HYDROXYZINE [Interacting]
     Active Substance: HYDROXYZINE HYDROCHLORIDE
     Indication: PRODUCT USED FOR UNKNOWN INDICATION
     Dosage: UNK
     Route: 065
  11. IVABRADINE [Concomitant]
     Active Substance: IVABRADINE
     Indication: SINUS TACHYCARDIA
     Dosage: 10 MG, QD
     Route: 065
  12. IVABRADINE [Concomitant]
     Active Substance: IVABRADINE
     Dosage: FILM-COATED TABLET
     Route: 048
  13. MIDAZOLAM [Concomitant]
     Active Substance: MIDAZOLAM HYDROCHLORIDE
     Indication: SEDATION
     Dosage: 15 MG, QH
     Route: 065
  14. INDOMETACIN [Suspect]
     Active Substance: INDOMETHACIN
     Indication: PAIN
     Dosage: UNK
     Route: 048
  15. BROMAZEPAM [Concomitant]
     Active Substance: BROMAZEPAM
     Indication: MENTAL DISORDER
     Dosage: 2 MG, QD
     Route: 048
  16. MIDAZOLAM [Concomitant]
     Active Substance: MIDAZOLAM HYDROCHLORIDE
     Indication: MYOCLONUS
     Dosage: 1 DF, 10-15 MG/H
     Route: 065

REACTIONS (28)
  - Arthralgia [Unknown]
  - Depressed level of consciousness [Not Recovered/Not Resolved]
  - Overdose [Not Recovered/Not Resolved]
  - Serotonin syndrome [Recovering/Resolving]
  - Agitation [Recovered/Resolved with Sequelae]
  - Oliguria [Not Recovered/Not Resolved]
  - Myoglobin blood increased [Unknown]
  - Tachycardia [Unknown]
  - Intentional product misuse [Not Recovered/Not Resolved]
  - Metabolic acidosis [Unknown]
  - Leukocytosis [Unknown]
  - Restlessness [Unknown]
  - Muscle spasms [Unknown]
  - Hyperhidrosis [Unknown]
  - Pyrexia [Unknown]
  - Drug ineffective [Not Recovered/Not Resolved]
  - Tremor [Recovered/Resolved with Sequelae]
  - Hypertension [Unknown]
  - Sinus tachycardia [Recovered/Resolved with Sequelae]
  - Apallic syndrome [Not Recovered/Not Resolved]
  - Pneumonia fungal [Unknown]
  - Delirium [Recovered/Resolved with Sequelae]
  - Circulatory collapse [Unknown]
  - Drug interaction [Recovering/Resolving]
  - Dyspnoea [Recovered/Resolved with Sequelae]
  - Mydriasis [Recovered/Resolved with Sequelae]
  - Myoclonus [Unknown]
  - Pneumonia [Unknown]
